FAERS Safety Report 6989797-4 (Version None)
Quarter: 2010Q3

REPORT INFORMATION
  Report Type: 
  Country: None (occurrence: None)
  Receive Date: 20100916
  Receipt Date: 20100311
  Transmission Date: 20110219
  Serious: Yes (Other)
  Sender: FDA-Public Use
  Company Number: US-PFIZER INC-2008010564

PATIENT
  Sex: Female
  Weight: 57.596 kg

DRUGS (8)
  1. LYRICA [Suspect]
     Indication: FIBROMYALGIA
     Dosage: 75 MG, 2X/DAY
     Route: 048
     Dates: start: 20071101
  2. GABAPENTIN [Suspect]
     Dosage: 100 MG, UNK
  3. GEODON [Suspect]
     Indication: DEPRESSION
     Dosage: 20 - 40MG WHEN NEEDED
  4. TEGRETOL [Suspect]
     Indication: PAIN
     Dosage: UNK
  5. COGENTIN [Suspect]
     Dosage: UNK
  6. LEVOXYL [Concomitant]
     Indication: HYPOTHYROIDISM
     Dosage: UNK
     Route: 048
  7. ELAVIL [Concomitant]
     Dosage: UNK
  8. CLONAZEPAM [Concomitant]
     Indication: ANXIETY
     Dosage: 2 MG, 4X/DAY

REACTIONS (8)
  - ACCIDENT [None]
  - CONFUSIONAL STATE [None]
  - DEPRESSION [None]
  - FEELING ABNORMAL [None]
  - FIBROMYALGIA [None]
  - JOINT SWELLING [None]
  - SWELLING FACE [None]
  - SWOLLEN TONGUE [None]
